FAERS Safety Report 6405812-0 (Version None)
Quarter: 2009Q4

REPORT INFORMATION
  Report Type: 
  Country: None (occurrence: None)
  Receive Date: 20091016
  Receipt Date: 20091016
  Transmission Date: 20100525
  Serious: Yes (Other)
  Sender: FDA-Public Use
  Company Number: None

PATIENT
  Sex: Female
  Weight: 93.2 kg

DRUGS (5)
  1. METFORMIN HCL [Suspect]
     Indication: INSULIN RESISTANCE
     Dosage: 250 MG 2X MOUTH
     Dates: start: 20090807, end: 20090821
  2. METFORMIN HCL [Suspect]
     Indication: INSULIN RESISTANCE
     Dosage: 125 MG 2X MOUTH
     Dates: start: 20090901, end: 20090909
  3. LIOTHYRONINE SODIUM [Concomitant]
  4. VITAMIN D [Concomitant]
  5. SUBLINGUAL [Concomitant]

REACTIONS (9)
  - ABDOMINAL DISCOMFORT [None]
  - DIARRHOEA [None]
  - DIZZINESS [None]
  - IMPAIRED DRIVING ABILITY [None]
  - LETHARGY [None]
  - PAIN [None]
  - PRURITUS [None]
  - RASH [None]
  - URTICARIA [None]
